FAERS Safety Report 25117433 (Version 1)
Quarter: 2025Q1

REPORT INFORMATION
  Report Type: Spontaneous
  Country: NG (occurrence: NG)
  Receive Date: 20250325
  Receipt Date: 20250325
  Transmission Date: 20250409
  Serious: Yes (Hospitalization, Other)
  Sender: STRIDES
  Company Number: NG-STRIDES ARCOLAB LIMITED-2025SP003819

PATIENT
  Sex: Male

DRUGS (3)
  1. FUROSEMIDE [Suspect]
     Active Substance: FUROSEMIDE
     Indication: Congenital pulmonary valve atresia
     Route: 048
  2. ENALAPRIL [Suspect]
     Active Substance: ENALAPRIL
     Indication: Congenital pulmonary valve atresia
     Route: 048
  3. ENALAPRIL [Suspect]
     Active Substance: ENALAPRIL
     Route: 048

REACTIONS (3)
  - Cardiogenic shock [Recovering/Resolving]
  - Condition aggravated [Unknown]
  - Drug ineffective for unapproved indication [Unknown]
